FAERS Safety Report 9871842 (Version 2)
Quarter: 2014Q1

REPORT INFORMATION
  Report Type: Spontaneous
  Country: JP (occurrence: JP)
  Receive Date: 20140205
  Receipt Date: 20140205
  Transmission Date: 20141002
  Serious: Yes (Other)
  Sender: FDA-Public Use
  Company Number: JP-TAKEDA-2013TJP004048

PATIENT
  Age: 57 Year
  Sex: Female
  Weight: 51 kg

DRUGS (9)
  1. ACTOS TABLETS 30 [Suspect]
     Indication: DIABETES MELLITUS
     Dosage: 15 MG, QD
     Route: 048
     Dates: start: 20130802, end: 20130806
  2. ACTOS TABLETS 30 [Suspect]
     Dosage: 30 MG, QD
     Route: 048
     Dates: start: 20130807, end: 20130906
  3. EURODIN                            /00425901/ [Concomitant]
     Indication: INSOMNIA
     Dosage: 2 MG, QD
     Route: 048
  4. MAGMITT [Concomitant]
     Indication: CONSTIPATION
     Dosage: 1000 MG, BID
     Route: 048
  5. RIVOTRIL [Concomitant]
     Indication: ANXIOLYTIC THERAPY
     Dosage: 1.5 MG, QD
     Route: 048
  6. DEPAKENE-R [Concomitant]
     Indication: ANXIETY
     Dosage: 200 MG, BID
     Route: 048
  7. CEPHADOL [Concomitant]
     Indication: DIZZINESS
     Dosage: 25 MG, TID
     Route: 048
  8. METHYCOBAL [Concomitant]
     Indication: DIZZINESS
     Dosage: 0.5 MG, TID
     Route: 048
  9. INSULIN HUMAN [Concomitant]
     Indication: DIABETES MELLITUS
     Route: 050

REACTIONS (1)
  - Pancytopenia [Recovered/Resolved]
